FAERS Safety Report 6215757-7 (Version None)
Quarter: 2009Q2

REPORT INFORMATION
  Report Type: 
  Country: None (occurrence: None)
  Receive Date: 20090603
  Receipt Date: 20090521
  Transmission Date: 20091009
  Serious: No
  Sender: FDA-Public Use
  Company Number: 2008-03896

PATIENT
  Age: 69 Year
  Sex: Male
  Weight: 61 kg

DRUGS (19)
  1. VELCADE [Suspect]
     Indication: MULTIPLE MYELOMA
     Dosage: 2 MG, INTRAVENOUS, 1.5 MG, INTRAVENOUS, 1 MG, INTRAVENOUS
     Route: 042
     Dates: start: 20070122, end: 20070201
  2. VELCADE [Suspect]
     Indication: MULTIPLE MYELOMA
     Dosage: 2 MG, INTRAVENOUS, 1.5 MG, INTRAVENOUS, 1 MG, INTRAVENOUS
     Route: 042
     Dates: start: 20070213, end: 20070216
  3. VELCADE [Suspect]
     Indication: MULTIPLE MYELOMA
     Dosage: 2 MG, INTRAVENOUS, 1.5 MG, INTRAVENOUS, 1 MG, INTRAVENOUS
     Route: 042
     Dates: start: 20070302, end: 20071224
  4. PREDNISOLONE [Concomitant]
  5. AMLODIPINE BESYLATE [Concomitant]
  6. WARFARIN SODIUM [Concomitant]
  7. SOLITA-T3 INJECTION (SODIUM LACTATE, SODIUM CHLORIDE, POTASSIUM CHLORI [Concomitant]
  8. FIRSTCIN (CEFOZOPRAN HYDROCHLORIDE) [Concomitant]
  9. DASEN (SERRAPEPTASE) [Concomitant]
  10. OXYGEN (OXYGEN) [Concomitant]
  11. CIPROFLOXACIN HCL [Concomitant]
  12. OXYCONTIN [Concomitant]
  13. SUPROFEN (SUPROFEN) [Concomitant]
  14. VALTREX [Concomitant]
  15. MUCODYNE (CARBOCISTEINE) [Concomitant]
  16. AMOXICILLIN TRIHYDRATE [Concomitant]
  17. DIFLUCAN [Concomitant]
  18. LENDORM [Concomitant]
  19. DEXAMETHASONE [Concomitant]

REACTIONS (9)
  - ANOREXIA [None]
  - BRONCHITIS [None]
  - ENCEPHALITIS [None]
  - HERPES ZOSTER [None]
  - LYMPHOCYTE COUNT DECREASED [None]
  - NEUROPATHY PERIPHERAL [None]
  - NEUTROPHIL COUNT DECREASED [None]
  - PLATELET COUNT DECREASED [None]
  - PNEUMONIA [None]
